FAERS Safety Report 4541585-4 (Version None)
Quarter: 2004Q4

REPORT INFORMATION
  Report Type: 
  Country: None (occurrence: None)
  Receive Date: 20041227
  Receipt Date: 20041220
  Transmission Date: 20050328
  Serious: Yes (Hospitalization)
  Sender: FDA-Public Use
  Company Number: 2004-12-0181

PATIENT
  Age: 57 Year
  Sex: Female
  Weight: 75 kg

DRUGS (9)
  1. REBETOL [Suspect]
     Indication: HEPATITIS C
     Dosage: 800-600* MG ORAL
     Route: 048
     Dates: start: 20040216, end: 20040228
  2. REBETOL [Suspect]
     Indication: HEPATITIS C
     Dosage: 800-600* MG ORAL
     Route: 048
     Dates: start: 20040229, end: 20040506
  3. INTRON A [Suspect]
     Indication: HEPATITIS C
     Dosage: 6 MU TIW INTRAMUSCULAR
     Route: 030
     Dates: start: 20040216, end: 20040505
  4. VASOLAN TABLETS [Concomitant]
  5. ALLOPURINOL [Concomitant]
  6. THEO-DUR [Concomitant]
  7. GASMOTIN (MOSAPRIDE CITRATE) TABLETS [Concomitant]
  8. HOKUNALIN TRANSDERMAL [Concomitant]
  9. STOGAR (LAFUTIDINE) TABLETS [Concomitant]

REACTIONS (1)
  - RHEUMATOID ARTHRITIS [None]
